FAERS Safety Report 13941907 (Version 1)
Quarter: 2017Q3

REPORT INFORMATION
  Report Type: Spontaneous
  Country: US (occurrence: None)
  Receive Date: 20170905
  Receipt Date: 20170905
  Transmission Date: 20171127
  Serious: Yes (Hospitalization)
  Sender: FDA-Public Use
  Company Number: None

PATIENT
  Age: 66 Year
  Sex: Female
  Weight: 118.2 kg

DRUGS (2)
  1. CYCLOPHOSPHAMIDE. [Suspect]
     Active Substance: CYCLOPHOSPHAMIDE
     Dates: end: 20170807
  2. DOXORUBICIN HYDROCHLORIDE. [Suspect]
     Active Substance: DOXORUBICIN HYDROCHLORIDE
     Dates: end: 20170807

REACTIONS (10)
  - Urinary tract infection [None]
  - Paraesthesia [None]
  - Fatigue [None]
  - Peroneal nerve palsy [None]
  - Pancytopenia [None]
  - Asthenia [None]
  - Klebsiella infection [None]
  - Pseudomonas infection [None]
  - Peripheral sensory neuropathy [None]
  - Nerve injury [None]

NARRATIVE: CASE EVENT DATE: 20170815
